FAERS Safety Report 5410283-7 (Version None)
Quarter: 2007Q3

REPORT INFORMATION
  Report Type: 
  Country: None (occurrence: None)
  Receive Date: 20070808
  Receipt Date: 20070725
  Transmission Date: 20080115
  Serious: Yes (Other)
  Sender: FDA-Public Use
  Company Number: 2007S1000295

PATIENT
  Sex: Female

DRUGS (2)
  1. CUBICIN [Suspect]
     Indication: BREAST INFECTION
     Dosage: 300 MG ; Q24H; IV
     Route: 042
  2. GENTAMICIN [Concomitant]

REACTIONS (8)
  - BLISTER [None]
  - FEELING HOT [None]
  - GENITAL EROSION [None]
  - MUCOUS MEMBRANE DISORDER [None]
  - ORAL MUCOSAL BLISTERING [None]
  - PRURITUS [None]
  - RASH GENERALISED [None]
  - SKIN EXFOLIATION [None]
